FAERS Safety Report 25836305 (Version 1)
Quarter: 2025Q3

REPORT INFORMATION
  Report Type: Spontaneous
  Country: US (occurrence: None)
  Receive Date: 20250922
  Receipt Date: 20250922
  Transmission Date: 20251021
  Serious: Yes (Other)
  Sender: FDA-CTU
  Company Number: None

PATIENT
  Age: 65 Year
  Sex: Female

DRUGS (1)
  1. OCTREOTIDE ACETATE [Suspect]
     Active Substance: OCTREOTIDE ACETATE
     Indication: Acromegaly
     Dosage: FREQUENCY : 3 TIMES A DAY;?STRENGTH: 100MCG/ML

REACTIONS (4)
  - Infection [None]
  - Diarrhoea [None]
  - Product temperature excursion issue [None]
  - Wrong technique in product usage process [None]
